FAERS Safety Report 8792868 (Version 7)
Quarter: 2015Q1

REPORT INFORMATION
  Report Type: Report from Study
  Country: CA (occurrence: CA)
  Receive Date: 20120918
  Receipt Date: 20150107
  Transmission Date: 20150721
  Serious: Yes (Death, Other)
  Sender: FDA-Public Use
  Company Number: CA-ASTRAZENECA-2012SE69716

PATIENT
  Age: 32600 Day
  Sex: Male

DRUGS (16)
  1. ZOLADEX [Suspect]
     Active Substance: GOSERELIN ACETATE
     Indication: PROSTATE CANCER
     Route: 058
     Dates: start: 20090304
  2. DEXAMETHASONE. [Concomitant]
     Active Substance: DEXAMETHASONE
  3. PREDNISONE. [Concomitant]
     Active Substance: PREDNISONE
  4. VITAMIN D [Concomitant]
     Active Substance: CHOLECALCIFEROL
  5. RAPAFLO [Concomitant]
     Active Substance: SILODOSIN
  6. DOCUSATE SODIUM. [Concomitant]
     Active Substance: DOCUSATE SODIUM
  7. RAMIPRIL. [Concomitant]
     Active Substance: RAMIPRIL
  8. XTANDI [Suspect]
     Active Substance: ENZALUTAMIDE
     Route: 065
  9. FRAGMIN [Suspect]
     Active Substance: DALTEPARIN SODIUM
     Route: 065
     Dates: start: 20140110
  10. ZOLADEX [Suspect]
     Active Substance: GOSERELIN ACETATE
     Indication: PROSTATE CANCER
     Route: 058
     Dates: end: 20141202
  11. ENZALUTAMIDE [Concomitant]
     Active Substance: ENZALUTAMIDE
  12. ZYTIGA [Suspect]
     Active Substance: ABIRATERONE ACETATE
     Indication: PROSTATIC SPECIFIC ANTIGEN INCREASED
     Route: 065
  13. ATENOLOL. [Concomitant]
     Active Substance: ATENOLOL
  14. ATORVASTATIN [Concomitant]
     Active Substance: ATORVASTATIN
  15. ABIRATERONE [Concomitant]
     Active Substance: ABIRATERONE
     Route: 048
  16. ROSUVASTATIN [Concomitant]
     Active Substance: ROSUVASTATIN
     Route: 048

REACTIONS (17)
  - Injection site haemorrhage [Recovering/Resolving]
  - Hydronephrosis [Not Recovered/Not Resolved]
  - Fall [Recovering/Resolving]
  - Lethargy [Recovering/Resolving]
  - Death [Fatal]
  - Skin injury [Not Recovered/Not Resolved]
  - Venous thrombosis limb [Recovering/Resolving]
  - Malignant neoplasm progression [Not Recovered/Not Resolved]
  - Pain [Recovering/Resolving]
  - Injection site bruising [Recovering/Resolving]
  - Peripheral swelling [Recovering/Resolving]
  - Scab [Not Recovered/Not Resolved]
  - Fatigue [Not Recovered/Not Resolved]
  - Loss of consciousness [Recovering/Resolving]
  - Weight decreased [Recovering/Resolving]
  - Gait disturbance [Recovering/Resolving]
  - Lymphadenopathy [Recovering/Resolving]

NARRATIVE: CASE EVENT DATE: 20131202
